FAERS Safety Report 9867114 (Version 1)
Quarter: 2014Q1

REPORT INFORMATION
  Report Type: Spontaneous
  Country: US (occurrence: US)
  Receive Date: 20140204
  Receipt Date: 20140204
  Transmission Date: 20141002
  Serious: Yes (Hospitalization)
  Sender: FDA-Public Use
  Company Number: US-BAYER-2014-017055

PATIENT
  Age: 31 Year
  Sex: Female
  Weight: 136.5 kg

DRUGS (5)
  1. YAZ [Suspect]
     Route: 048
  2. CYCLOBENZAPRINE [Concomitant]
     Dosage: 5 MG, UNK
  3. AZITHROMYCIN [Concomitant]
     Dosage: 250 MG, UNK
  4. MAXALT [Concomitant]
     Dosage: 10 MG UNK
  5. HYDROCODONE W/APAP [Concomitant]
     Dosage: 7.5/500 MG

REACTIONS (2)
  - Pelvic venous thrombosis [None]
  - Deep vein thrombosis [None]
